FAERS Safety Report 18898588 (Version 1)
Quarter: 2021Q1

REPORT INFORMATION
  Report Type: Spontaneous
  Country: US (occurrence: US)
  Receive Date: 20210216
  Receipt Date: 20210216
  Transmission Date: 20210420
  Serious: No
  Sender: FDA-Public Use
  Company Number: US-FERRINGPH-2020FE07267

PATIENT
  Sex: Female

DRUGS (1)
  1. NOVAREL [Suspect]
     Active Substance: CHORIOGONADOTROPIN ALFA
     Indication: ARTIFICIAL INSEMINATION
     Dosage: 10000 IU
     Route: 058

REACTIONS (4)
  - Off label use [Unknown]
  - Incorrect route of product administration [Unknown]
  - Headache [Recovered/Resolved]
  - Pruritus [Recovered/Resolved]
